FAERS Safety Report 9164762 (Version 1)
Quarter: 2013Q1

REPORT INFORMATION
  Report Type: Spontaneous
  Country: JP (occurrence: JP)
  Receive Date: 20130315
  Receipt Date: 20130315
  Transmission Date: 20140127
  Serious: Yes (Life-Threatening, Other)
  Sender: FDA-Public Use
  Company Number: JP-PFIZER INC-2013085918

PATIENT
  Age: 56 Year
  Sex: Female
  Weight: 45 kg

DRUGS (31)
  1. CAMPTO [Suspect]
     Indication: COLON CANCER
     Dosage: 150 MG, 1X/DAY
     Route: 041
     Dates: start: 20120807, end: 20120807
  2. ELPLAT [Suspect]
     Indication: COLON CANCER
     Dosage: 110 MG, 1X/DAY
     Route: 041
     Dates: start: 20111205, end: 20111205
  3. ELPLAT [Suspect]
     Dosage: 110 MG, 1X/DAY
     Route: 041
     Dates: start: 20120110, end: 20120110
  4. ELPLAT [Suspect]
     Dosage: 110 MG, 1X/DAY
     Route: 041
     Dates: start: 20120123, end: 20120123
  5. ELPLAT [Suspect]
     Dosage: 110 MG, 1X/DAY
     Route: 041
     Dates: start: 20120213, end: 20120213
  6. ELPLAT [Suspect]
     Dosage: 90 MG, 1X/DAY
     Route: 041
     Dates: start: 20120402, end: 20120402
  7. ELPLAT [Suspect]
     Dosage: 90 MG, 1X/DAY
     Route: 041
     Dates: start: 20120420, end: 20120420
  8. ELPLAT [Suspect]
     Dosage: 90 MG, 1X/DAY
     Route: 041
     Dates: start: 20120515, end: 20120515
  9. ELPLAT [Suspect]
     Dosage: 90 MG, 1X/DAY
     Route: 041
     Dates: start: 20120529, end: 20120529
  10. ELPLAT [Suspect]
     Dosage: 90 MG, 1X/DAY
     Route: 041
     Dates: start: 20120612, end: 20120612
  11. ELPLAT [Suspect]
     Dosage: 90 MG, 1X/DAY
     Route: 041
     Dates: start: 20120626, end: 20120626
  12. ELPLAT [Suspect]
     Dosage: 90 MG, 1X/DAY
     Route: 041
     Dates: start: 20120710, end: 20120710
  13. ELPLAT [Suspect]
     Dosage: 90 MG, 1X/DAY
     Route: 041
     Dates: start: 20120724, end: 20120724
  14. LEVOFOLINATE [Suspect]
     Indication: COLON CANCER
     Dosage: 250 MG, 1X/DAY
     Route: 041
     Dates: start: 20111205, end: 20111205
  15. LEVOFOLINATE [Suspect]
     Dosage: 250 MG, 1X/DAY
     Route: 041
     Dates: start: 20120110, end: 20120110
  16. LEVOFOLINATE [Suspect]
     Dosage: 250 MG, 1X/DAY
     Route: 041
     Dates: start: 20120123, end: 20120123
  17. LEVOFOLINATE [Suspect]
     Dosage: 250 MG, 1X/DAY
     Route: 041
     Dates: start: 20120213, end: 20120213
  18. LEVOFOLINATE [Suspect]
     Dosage: 210 MG, 1X/DAY
     Route: 041
     Dates: start: 20120402, end: 20120402
  19. LEVOFOLINATE [Suspect]
     Dosage: 210 MG, 1X/DAY
     Route: 041
     Dates: start: 20120420, end: 20120420
  20. LEVOFOLINATE [Suspect]
     Dosage: 210 MG, 1X/DAY
     Route: 041
     Dates: start: 20120515, end: 20120515
  21. LEVOFOLINATE [Suspect]
     Dosage: 210 MG, 1X/DAY
     Route: 041
     Dates: start: 20120529, end: 20120529
  22. LEVOFOLINATE [Suspect]
     Dosage: 210 MG, 1X/DAY
     Route: 041
     Dates: start: 20120612, end: 20120612
  23. LEVOFOLINATE [Suspect]
     Dosage: 210 MG, 1X/DAY
     Route: 041
     Dates: start: 20120626, end: 20120626
  24. LEVOFOLINATE [Suspect]
     Dosage: 210 MG, 1X/DAY
     Route: 041
     Dates: start: 20120710, end: 20120710
  25. LEVOFOLINATE [Suspect]
     Dosage: 210 MG, 1X/DAY
     Route: 041
     Dates: start: 20120724, end: 20120724
  26. LEVOFOLINATE [Suspect]
     Dosage: 250 MG, 1X/DAY
     Route: 041
     Dates: start: 20120807, end: 20120807
  27. 5-FU [Concomitant]
     Dosage: UNK
     Dates: start: 20111205, end: 20120710
  28. AVASTIN [Concomitant]
     Dosage: UNK
     Dates: start: 20111205, end: 20120807
  29. DECADRON [Concomitant]
     Dosage: UNK
     Dates: start: 20111205, end: 20120807
  30. NEOPHYLLIN [Concomitant]
     Dosage: UNK
     Dates: start: 20120724, end: 20120807
  31. SAXIZON [Concomitant]
     Dosage: UNK
     Dates: start: 20120724, end: 20120807

REACTIONS (5)
  - Anaphylactic shock [Recovered/Resolved]
  - Anaphylactic shock [Recovered/Resolved]
  - Platelet count decreased [Unknown]
  - White blood cell count decreased [Unknown]
  - Neutrophil count decreased [Unknown]
